FAERS Safety Report 13910836 (Version 1)
Quarter: 2017Q3

REPORT INFORMATION
  Report Type: Spontaneous
  Country: JP (occurrence: JP)
  Receive Date: 20170828
  Receipt Date: 20170828
  Transmission Date: 20171127
  Serious: Yes (Death)
  Sender: FDA-Public Use
  Company Number: JP-PFIZER INC-2017364892

PATIENT
  Age: 77 Year
  Sex: Female

DRUGS (3)
  1. REVATIO [Suspect]
     Active Substance: SILDENAFIL CITRATE
     Indication: PULMONARY HYPERTENSION
     Dosage: UNK
  2. BERAPROST [Concomitant]
     Active Substance: BERAPROST
     Dosage: UNK
  3. BOSENTAN. [Concomitant]
     Active Substance: BOSENTAN
     Dosage: UNK

REACTIONS (2)
  - Pulmonary hypertension [Fatal]
  - Disease progression [Fatal]
